FAERS Safety Report 25222740 (Version 3)
Quarter: 2025Q2

REPORT INFORMATION
  Report Type: Report from Study
  Country: US (occurrence: US)
  Receive Date: 20250422
  Receipt Date: 20250515
  Transmission Date: 20250716
  Serious: Yes (Death, Hospitalization, Other)
  Sender: JAZZ
  Company Number: US-JAZZ PHARMACEUTICALS-2025-US-009938

PATIENT
  Sex: Male

DRUGS (1)
  1. EPIDIOLEX [Suspect]
     Active Substance: CANNABIDIOL
     Indication: Lennox-Gastaut syndrome
     Dosage: 1 MILLILITER, BID
     Route: 048
     Dates: start: 202209

REACTIONS (2)
  - Death [Fatal]
  - Hospitalisation [Unknown]
